FAERS Safety Report 5858858-5 (Version None)
Quarter: 2008Q3

REPORT INFORMATION
  Report Type: 
  Country: None (occurrence: None)
  Receive Date: 20080818
  Receipt Date: 20080424
  Transmission Date: 20090109
  Serious: No
  Sender: FDA-Public Use
  Company Number: WAES 0803USA01228

PATIENT
  Age: 81 Year
  Sex: Male
  Weight: 87.9978 kg

DRUGS (16)
  1. JANUVIA [Suspect]
     Indication: TYPE 2 DIABETES MELLITUS
     Dosage: 100 MG/DAILY/PO; 50 MG/CONT/PO
     Route: 048
     Dates: start: 20071001, end: 20080101
  2. JANUVIA [Suspect]
     Indication: TYPE 2 DIABETES MELLITUS
     Dosage: 100 MG/DAILY/PO; 50 MG/CONT/PO
     Route: 048
     Dates: start: 20080101, end: 20080306
  3. AMLODIPINE [Concomitant]
  4. DIOVAN [Concomitant]
  5. FERREX [Concomitant]
  6. LANOXIN [Concomitant]
  7. TRICOR [Concomitant]
  8. ZETIA [Concomitant]
  9. ALLOPURINOL [Concomitant]
  10. ASPIRIN [Concomitant]
  11. CYANOCOBALAMIN [Concomitant]
  12. FUROSEMIDE [Concomitant]
  13. ISOSORBIDE [Concomitant]
  14. METOPROLOL SUCCINATE [Concomitant]
  15. NIACIN [Concomitant]
  16. OMEGA-3 MARINE TRIGLYCERIDES [Concomitant]

REACTIONS (2)
  - BLOOD CREATININE INCREASED [None]
  - INCORRECT DOSE ADMINISTERED [None]
